FAERS Safety Report 22256297 (Version 1)
Quarter: 2023Q2

REPORT INFORMATION
  Report Type: Report from Study
  Country: US (occurrence: US)
  Receive Date: 20230426
  Receipt Date: 20230426
  Transmission Date: 20230722
  Serious: Yes (Hospitalization)
  Sender: FDA-Public Use
  Company Number: US-EXELIXIS-XL18423062980

PATIENT

DRUGS (2)
  1. PLACEBO [Suspect]
     Active Substance: UNSPECIFIED INGREDIENT
     Indication: Malignant neoplasm of islets of Langerhans
     Dosage: 60 MG, QD
     Route: 048
     Dates: start: 20220805
  2. CABOZANTINIB [Suspect]
     Active Substance: CABOZANTINIB
     Indication: Malignant neoplasm of islets of Langerhans
     Dosage: 60 MG, QD
     Route: 048
     Dates: start: 20220805

REACTIONS (3)
  - Nephrolithiasis [Recovering/Resolving]
  - Delirium [Recovering/Resolving]
  - Sepsis [Recovering/Resolving]

NARRATIVE: CASE EVENT DATE: 20230408
